FAERS Safety Report 5184352-3 (Version None)
Quarter: 2006Q4

REPORT INFORMATION
  Report Type: 
  Country: None (occurrence: None)
  Receive Date: 20061220
  Receipt Date: 20060403
  Transmission Date: 20070319
  Serious: No
  Sender: FDA-Public Use
  Company Number: US-GLAXOSMITHKLINE-A0600014A

PATIENT
  Age: 40 Year

DRUGS (2)
  1. NICODERM CQ [Suspect]
     Indication: DRUG WITHDRAWAL MAINTENANCE THERAPY
     Dates: start: 20060401, end: 20060401
  2. PERCOCET [Concomitant]

REACTIONS (1)
  - DIZZINESS [None]
